FAERS Safety Report 17450191 (Version 1)
Quarter: 2020Q1

REPORT INFORMATION
  Report Type: Spontaneous
  Country: US (occurrence: US)
  Receive Date: 20200221
  Receipt Date: 20200221
  Transmission Date: 20200409
  Serious: Yes (Hospitalization)
  Sender: FDA-Public Use
  Company Number: None

PATIENT
  Age: 65 Year
  Sex: Male
  Weight: 91.35 kg

DRUGS (18)
  1. NIACIN. [Concomitant]
     Active Substance: NIACIN
  2. GLIMEPIRIDE. [Concomitant]
     Active Substance: GLIMEPIRIDE
  3. RAMIPRIL. [Concomitant]
     Active Substance: RAMIPRIL
  4. MULTIVITAMIN [Concomitant]
     Active Substance: VITAMINS
  5. METFORMIN [Concomitant]
     Active Substance: METFORMIN HYDROCHLORIDE
  6. ATORVASTATIN [Concomitant]
     Active Substance: ATORVASTATIN
  7. BUMETANIDE. [Concomitant]
     Active Substance: BUMETANIDE
  8. EZETIMBE [Concomitant]
     Active Substance: EZETIMIBE
  9. VITAMIN D3 [Concomitant]
     Active Substance: CHOLECALCIFEROL
  10. BENADRYL [Concomitant]
     Active Substance: DIPHENHYDRAMINE HYDROCHLORIDE
  11. XARELTO [Concomitant]
     Active Substance: RIVAROXABAN
  12. TYLENOL [Concomitant]
     Active Substance: ACETAMINOPHEN
  13. OTEZLA [Suspect]
     Active Substance: APREMILAST
     Indication: PSORIASIS
     Dosage: ?          QUANTITY:1 TABLET(S);?
     Route: 048
     Dates: start: 20200121, end: 20200214
  14. DIGIOXIN [Concomitant]
  15. JARDIANCE [Concomitant]
     Active Substance: EMPAGLIFLOZIN
  16. JANUVIA [Concomitant]
     Active Substance: SITAGLIPTIN PHOSPHATE
  17. ASPIRIN. [Concomitant]
     Active Substance: ASPIRIN
  18. POTASSIUM [Concomitant]
     Active Substance: POTASSIUM

REACTIONS (4)
  - Pneumonia [None]
  - Atrial fibrillation [None]
  - Dyspnoea [None]
  - Palpitations [None]

NARRATIVE: CASE EVENT DATE: 20200215
